FAERS Safety Report 21088439 (Version 4)
Quarter: 2024Q1

REPORT INFORMATION
  Report Type: Spontaneous
  Country: US (occurrence: US)
  Receive Date: 20220715
  Receipt Date: 20240227
  Transmission Date: 20240410
  Serious: No
  Sender: FDA-Public Use
  Company Number: US-BIOGEN-2022BI01137735

PATIENT
  Sex: Female

DRUGS (1)
  1. TYSABRI [Suspect]
     Active Substance: NATALIZUMAB
     Indication: Multiple sclerosis
     Route: 050
     Dates: start: 20080919

REACTIONS (4)
  - Multiple sclerosis [Not Recovered/Not Resolved]
  - Frustration tolerance decreased [Unknown]
  - Multiple sclerosis relapse [Unknown]
  - Pneumonia [Unknown]
